FAERS Safety Report 24209778 (Version 5)
Quarter: 2025Q1

REPORT INFORMATION
  Report Type: Spontaneous
  Country: US (occurrence: US)
  Receive Date: 20240814
  Receipt Date: 20250206
  Transmission Date: 20250409
  Serious: No
  Sender: PFIZER
  Company Number: US-PFIZER INC-PV202300164639

PATIENT
  Age: 79 Year
  Sex: Female

DRUGS (8)
  1. IBRANCE [Suspect]
     Active Substance: PALBOCICLIB
     Indication: Breast cancer metastatic
     Route: 048
  2. IBRANCE [Suspect]
     Active Substance: PALBOCICLIB
     Route: 048
  3. IBRANCE [Suspect]
     Active Substance: PALBOCICLIB
     Route: 048
  4. IBRANCE [Suspect]
     Active Substance: PALBOCICLIB
     Route: 048
  5. IBRANCE [Suspect]
     Active Substance: PALBOCICLIB
     Route: 048
  6. IBRANCE [Suspect]
     Active Substance: PALBOCICLIB
     Route: 048
  7. IBRANCE [Suspect]
     Active Substance: PALBOCICLIB
     Route: 048
  8. ANAGRELIDE [Concomitant]
     Active Substance: ANAGRELIDE
     Dosage: 50 MG, 2X/DAY (TWICE A DAY)

REACTIONS (8)
  - Immune system disorder [Unknown]
  - White blood cell count decreased [Unknown]
  - Red blood cell count decreased [Unknown]
  - Dizziness [Unknown]
  - Mental fatigue [Unknown]
  - Feeling abnormal [Unknown]
  - Product prescribing issue [Unknown]
  - Off label use [Unknown]
